FAERS Safety Report 19587381 (Version 1)
Quarter: 2021Q3

REPORT INFORMATION
  Report Type: Report from Study
  Country: CA (occurrence: CA)
  Receive Date: 20210721
  Receipt Date: 20210721
  Transmission Date: 20211014
  Serious: No
  Sender: FDA-Public Use
  Company Number: CA-KARYOPHARM-2021KPT000063

PATIENT
  Age: 16 Year
  Sex: Male

DRUGS (1)
  1. SELINEXOR [Suspect]
     Active Substance: SELINEXOR
     Indication: SARCOMA
     Dosage: UNK
     Route: 048
     Dates: start: 20201207, end: 20210106

REACTIONS (1)
  - Sarcoma [Recovered/Resolved]

NARRATIVE: CASE EVENT DATE: 20210106
